FAERS Safety Report 4380281-3 (Version None)
Quarter: 2004Q2

REPORT INFORMATION
  Report Type: 
  Country: None (occurrence: None)
  Receive Date: 20040618
  Receipt Date: 20040607
  Transmission Date: 20050107
  Serious: Yes (Other)
  Sender: FDA-Public Use
  Company Number: PHNU2004DE02054

PATIENT
  Age: 52 Year
  Sex: Female

DRUGS (4)
  1. NORETHINDRONE AND ETHINYL ESTRADIOL [Suspect]
     Indication: MENOPAUSAL SYMPTOMS
     Route: 062
  2. INSIDON ^CIBA-GEIGY^ [Concomitant]
  3. PERAZINE ^NEURAXPHARM^ [Concomitant]
  4. MIDRO TABLETTEN [Concomitant]

REACTIONS (2)
  - FATIGUE [None]
  - WEIGHT INCREASED [None]
